FAERS Safety Report 7868250-X (Version None)
Quarter: 2011Q4

REPORT INFORMATION
  Report Type: 
  Country: None (occurrence: None)
  Receive Date: 20111028
  Receipt Date: 20101215
  Transmission Date: 20120403
  Serious: Yes (Hospitalization)
  Sender: FDA-Public Use
  Company Number: US-AMGEN-KDL279079

PATIENT
  Age: 51 Year
  Sex: Male

DRUGS (2)
  1. ENBREL [Suspect]
     Indication: PSORIASIS
     Dosage: 50 MG, 2 TIMES/WK
     Route: 058
     Dates: start: 20080507
  2. ENBREL [Suspect]
     Dosage: 50 MG, QWK
     Dates: start: 20080507, end: 20101122

REACTIONS (5)
  - CELLULITIS [None]
  - BLEEDING TIME ABNORMAL [None]
  - STAPHYLOCOCCAL SEPSIS [None]
  - DRUG INEFFECTIVE [None]
  - STAPHYLOCOCCAL INFECTION [None]
